FAERS Safety Report 16723765 (Version 2)
Quarter: 2019Q4

REPORT INFORMATION
  Report Type: Spontaneous
  Country: US (occurrence: US)
  Receive Date: 20190821
  Receipt Date: 20191031
  Transmission Date: 20200122
  Serious: Yes (Hospitalization, Other)
  Sender: FDA-Public Use
  Company Number: US-CORCEPT THERAPEUTICS INC.-US-2019CRT000711

PATIENT
  Sex: Female

DRUGS (1)
  1. KORLYM [Suspect]
     Active Substance: MIFEPRISTONE
     Indication: CUSHING^S SYNDROME
     Dosage: 600 MG, QOD
     Route: 048
     Dates: start: 201205

REACTIONS (7)
  - Haemorrhagic stroke [Unknown]
  - Blood pressure increased [Unknown]
  - Arthralgia [Recovered/Resolved]
  - Aphasia [Recovering/Resolving]
  - Atrial fibrillation [Unknown]
  - Inappropriate schedule of product administration [Unknown]
  - Muscular weakness [Unknown]

NARRATIVE: CASE EVENT DATE: 2019
